FAERS Safety Report 6019555-9 (Version None)
Quarter: 2008Q4

REPORT INFORMATION
  Report Type: 
  Country: None (occurrence: None)
  Receive Date: 20081224
  Receipt Date: 20081215
  Transmission Date: 20090506
  Serious: Yes (Other)
  Sender: FDA-Public Use
  Company Number: PHHY2008DE20483

PATIENT
  Sex: Male

DRUGS (7)
  1. SANDIMMUNE [Suspect]
     Indication: BASEDOW'S DISEASE
     Dosage: 150 MG/DAY
     Route: 048
     Dates: start: 20020801, end: 20070601
  2. SANDIMMUNE [Suspect]
     Dosage: 100 MG/DAY
     Route: 048
     Dates: start: 20070701, end: 20080901
  3. VALSARTAN [Suspect]
  4. METOPROLOL [Suspect]
  5. PREDNISOLONE [Suspect]
  6. ADALIMUMAB [Suspect]
  7. TRIAMTERENE AND HYDROCHLOROTHIAZIDE [Suspect]

REACTIONS (1)
  - POLYNEUROPATHY [None]
